FAERS Safety Report 7769811-9 (Version None)
Quarter: 2011Q3

REPORT INFORMATION
  Report Type: 
  Country: None (occurrence: None)
  Receive Date: 20110922
  Receipt Date: 20110531
  Transmission Date: 20111222
  Serious: Yes (Hospitalization)
  Sender: FDA-Public Use
  Company Number: US-ASTRAZENECA-2011SE33676

PATIENT
  Age: 62 Year
  Sex: Male

DRUGS (2)
  1. SEROQUEL [Suspect]
     Indication: POST-TRAUMATIC STRESS DISORDER
     Route: 048
     Dates: end: 20090301
  2. ATENOLOL [Concomitant]

REACTIONS (4)
  - DIABETES MELLITUS [None]
  - WEIGHT INCREASED [None]
  - PANCREATITIS [None]
  - WEIGHT DECREASED [None]
